FAERS Safety Report 8286424-3 (Version None)
Quarter: 2012Q2

REPORT INFORMATION
  Report Type: 
  Country: None (occurrence: None)
  Receive Date: 20120411
  Receipt Date: 20120323
  Transmission Date: 20120825
  Serious: Yes (Hospitalization)
  Sender: FDA-Public Use
  Company Number: AUR-APL-2012-01764

PATIENT
  Age: 53 Year
  Sex: Female
  Weight: 82 kg

DRUGS (11)
  1. CP-690, 550 [Suspect]
     Indication: RHEUMATOID ARTHRITIS
     Dosage: 20 MG (10 MG, 2 IN 1 D), ORAL
     Route: 048
     Dates: start: 20100929, end: 20120117
  2. METFORMIN HCL [Suspect]
     Indication: TYPE 2 DIABETES MELLITUS
     Dosage: UNKNOWN
     Dates: start: 20070817
  3. CIPRAMIL (CITALOPRAM) [Suspect]
     Indication: DEPRESSION
     Dosage: UNKNOWN
     Dates: start: 20060101
  4. PROTHIPENDYL (PROTHIPENDYL) [Suspect]
     Indication: DEPRESSION
     Dosage: UNKNOWN
     Dates: start: 20060101
  5. FOLIC ACID [Concomitant]
  6. METHOTREXATE SODIUM [Suspect]
     Indication: RHEUMATOID ARTHRITIS
     Dosage: UNKNOWN
     Dates: start: 20110923
  7. EPROSARTAN (EPROSARTAN) [Concomitant]
  8. METOPROLOL TARTRATE [Concomitant]
  9. MESALAMINE [Concomitant]
  10. OMEPRAZOLE [Concomitant]
  11. ENALAPRIL MALEATE [Concomitant]

REACTIONS (2)
  - GENERAL PHYSICAL HEALTH DETERIORATION [None]
  - HAEMOGLOBIN DECREASED [None]
